FAERS Safety Report 5008359-1 (Version None)
Quarter: 2006Q2

REPORT INFORMATION
  Report Type: 
  Country: None (occurrence: None)
  Receive Date: 20060404
  Receipt Date: 20060130
  Transmission Date: 20061013
  Serious: No
  Sender: FDA-Public Use
  Company Number: US200602000196

PATIENT
  Age: 55 Year
  Sex: Male

DRUGS (1)
  1. CYMBALTA [Suspect]
     Dosage: 60 MG, CAPSULE, ORAL
     Route: 048
     Dates: start: 20050608, end: 20051230

REACTIONS (4)
  - AGGRESSION [None]
  - AGITATION [None]
  - ANGER [None]
  - SUICIDAL IDEATION [None]
